FAERS Safety Report 16072467 (Version 3)
Quarter: 2024Q2

REPORT INFORMATION
  Report Type: Spontaneous
  Country: CN (occurrence: CN)
  Receive Date: 20190314
  Receipt Date: 20240415
  Transmission Date: 20240715
  Serious: Yes (Hospitalization, Other)
  Sender: FDA-Public Use
  Company Number: None

PATIENT
  Age: 36 Year
  Sex: Male

DRUGS (10)
  1. VANCOMYCIN [Suspect]
     Active Substance: VANCOMYCIN
     Indication: Pneumonia
     Dosage: UNK
     Route: 065
     Dates: start: 2017
  2. VANCOMYCIN [Suspect]
     Active Substance: VANCOMYCIN
     Indication: Systemic bacterial infection
  3. OXACILLIN [Suspect]
     Active Substance: OXACILLIN SODIUM
     Indication: Pneumonia
     Dosage: UNK
     Route: 065
     Dates: start: 2017
  4. OXACILLIN [Suspect]
     Active Substance: OXACILLIN SODIUM
     Indication: Systemic bacterial infection
  5. AMIKACIN [Suspect]
     Active Substance: AMIKACIN
     Indication: Pneumonia
     Dosage: UNK
     Route: 065
     Dates: start: 2017
  6. AMIKACIN [Suspect]
     Active Substance: AMIKACIN
     Indication: Systemic bacterial infection
  7. IMIPENEM [Suspect]
     Active Substance: IMIPENEM
     Indication: Pneumonia
     Dosage: UNK
     Route: 065
     Dates: start: 2017
  8. IMIPENEM [Suspect]
     Active Substance: IMIPENEM
     Indication: Systemic bacterial infection
  9. CEFTAZIDIME [Suspect]
     Active Substance: CEFTAZIDIME
     Indication: Pneumonia
     Dosage: UNK
     Route: 065
     Dates: start: 2017
  10. CEFTAZIDIME [Suspect]
     Active Substance: CEFTAZIDIME
     Indication: Systemic bacterial infection

REACTIONS (4)
  - Coagulation factor deficiency [Recovered/Resolved]
  - Wound haemorrhage [Recovered/Resolved]
  - Respiratory tract congestion [Recovered/Resolved]
  - Hyperaemia [Unknown]

NARRATIVE: CASE EVENT DATE: 20170101
